FAERS Safety Report 7459953-X (Version None)
Quarter: 2011Q2

REPORT INFORMATION
  Report Type: 
  Country: None (occurrence: None)
  Receive Date: 20110505
  Receipt Date: 20110503
  Transmission Date: 20111010
  Serious: Yes (Other)
  Sender: FDA-Public Use
  Company Number: GB-PFIZER INC-2011095498

PATIENT
  Sex: Female

DRUGS (4)
  1. DICLOFENAC [Concomitant]
     Indication: BACK PAIN
     Dosage: 50 MG, 3X/DAY
     Route: 048
     Dates: start: 20071101
  2. CHAMPIX [Suspect]
     Indication: SMOKING CESSATION THERAPY
     Dosage: UNK
     Route: 048
     Dates: start: 20110402, end: 20110410
  3. CODEINE PHOSPHATE [Concomitant]
     Indication: BACK PAIN
     Dosage: 15 MG, 3X/DAY
     Route: 048
     Dates: start: 20070812
  4. GABAPENTIN [Concomitant]
     Indication: SCIATICA
     Dosage: 400 MG, UNK
     Route: 048
     Dates: start: 20110104

REACTIONS (2)
  - AGGRESSION [None]
  - MOOD ALTERED [None]
